APPROVED DRUG PRODUCT: RANITIDINE HYDROCHLORIDE
Active Ingredient: RANITIDINE HYDROCHLORIDE
Strength: EQ 150MG BASE
Dosage Form/Route: TABLET;ORAL
Application: A211289 | Product #001 | TE Code: AB
Applicant: VKT PHARMA PRIVATE LTD
Approved: Jan 31, 2019 | RLD: No | RS: No | Type: RX